FAERS Safety Report 24005330 (Version 2)
Quarter: 2024Q3

REPORT INFORMATION
  Report Type: Report from Study
  Country: US (occurrence: US)
  Receive Date: 20240624
  Receipt Date: 20240703
  Transmission Date: 20241016
  Serious: No
  Sender: ALEXION PHARMACEUTICALS
  Company Number: US-AstraZeneca-CH-00648837A

PATIENT
  Age: 69 Year
  Sex: Male

DRUGS (2)
  1. ULTOMIRIS [Suspect]
     Active Substance: RAVULIZUMAB-CWVZ
     Indication: Myasthenia gravis
     Dosage: UNK
     Route: 042
     Dates: start: 20230622
  2. SOLIRIS [Suspect]
     Active Substance: ECULIZUMAB
     Indication: Myasthenia gravis
     Dosage: UNK
     Route: 065
     Dates: start: 20180920

REACTIONS (12)
  - Facial pain [Not Recovered/Not Resolved]
  - Pain in extremity [Unknown]
  - Eyelid ptosis [Unknown]
  - Back pain [Unknown]
  - Arthralgia [Unknown]
  - Chills [Unknown]
  - Body temperature increased [Unknown]
  - Headache [Not Recovered/Not Resolved]
  - Sleep deficit [Unknown]
  - Hypoaesthesia [Unknown]
  - Fatigue [Unknown]
  - Periorbital oedema [Unknown]

NARRATIVE: CASE EVENT DATE: 20240613
